FAERS Safety Report 8427498-6 (Version None)
Quarter: 2012Q2

REPORT INFORMATION
  Report Type: 
  Country: None (occurrence: None)
  Receive Date: 20120323
  Receipt Date: 20110804
  Transmission Date: 20120825
  Serious: Yes (Hospitalization)
  Sender: FDA-Public Use
  Company Number: 163-21880-11080636

PATIENT
  Age: 51 Year
  Sex: Male
  Weight: 46.7205 kg

DRUGS (1)
  1. REVLIMID [Suspect]
     Indication: MULTIPLE MYELOMA
     Dosage: 25 MG, DAILY FOR 21 / 28 DAYS, PO
     Route: 048
     Dates: start: 20110401, end: 20110718

REACTIONS (2)
  - ABDOMINAL PAIN [None]
  - DIARRHOEA [None]
